FAERS Safety Report 26203903 (Version 1)
Quarter: 2025Q4

REPORT INFORMATION
  Report Type: Report from Study
  Country: US (occurrence: US)
  Receive Date: 20251226
  Receipt Date: 20251226
  Transmission Date: 20260118
  Serious: Yes (Other)
  Sender: ABBVIE
  Company Number: US-ABBVIE-6598011

PATIENT
  Age: 63 Year
  Sex: Female

DRUGS (1)
  1. RINVOQ [Suspect]
     Active Substance: UPADACITINIB
     Indication: Psoriatic arthropathy
     Dosage: STRENGTH: 15 MG
     Route: 048
     Dates: start: 202509, end: 20251215

REACTIONS (8)
  - Pulmonary oedema [Unknown]
  - Asthma [Unknown]
  - Guttate psoriasis [Not Recovered/Not Resolved]
  - Inflammation [Unknown]
  - Fatigue [Unknown]
  - White blood cell count increased [Unknown]
  - Procedural failure [Not Recovered/Not Resolved]
  - Feeling abnormal [Unknown]

NARRATIVE: CASE EVENT DATE: 20250101
